FAERS Safety Report 17663962 (Version 1)
Quarter: 2020Q2

REPORT INFORMATION
  Report Type: Spontaneous
  Country: US (occurrence: US)
  Receive Date: 20200414
  Receipt Date: 20200414
  Transmission Date: 20200713
  Serious: Yes (Other)
  Sender: FDA-Public Use
  Company Number: US-CIPLA LTD.-2020US02536

PATIENT

DRUGS (1)
  1. TESTOSTERONE. [Suspect]
     Active Substance: TESTOSTERONE
     Indication: MUSCLE BUILDING THERAPY
     Dosage: UNK, WEEKLY
     Route: 042

REACTIONS (6)
  - Myocarditis [Unknown]
  - Sinus bradycardia [Unknown]
  - Left ventricular hypertrophy [Unknown]
  - Atrioventricular block complete [Recovered/Resolved]
  - Atrioventricular block first degree [Recovered/Resolved]
  - Bundle branch block right [Recovered/Resolved]
